FAERS Safety Report 18279467 (Version 1)
Quarter: 2020Q3

REPORT INFORMATION
  Report Type: Spontaneous
  Country: US (occurrence: US)
  Receive Date: 20200917
  Receipt Date: 20200917
  Transmission Date: 20201103
  Serious: No
  Sender: FDA-Public Use
  Company Number: US-SHIRE-US202030256

PATIENT
  Age: 54 Year
  Sex: Male
  Weight: 87.08 kg

DRUGS (1)
  1. GAMMAGARD LIQUID [Suspect]
     Active Substance: HUMAN IMMUNOGLOBULIN G
     Indication: IMMUNODEFICIENCY COMMON VARIABLE
     Dosage: 60 GRAM, EVERY 3 WK
     Route: 042

REACTIONS (5)
  - Headache [Unknown]
  - Visual impairment [Unknown]
  - Migraine [Unknown]
  - Photophobia [Unknown]
  - Bedridden [Unknown]

NARRATIVE: CASE EVENT DATE: 20200819
